FAERS Safety Report 18890788 (Version 1)
Quarter: 2021Q1

REPORT INFORMATION
  Report Type: Other
  Country: NL (occurrence: NL)
  Receive Date: 20210215
  Receipt Date: 20210215
  Transmission Date: 20210420
  Serious: Yes (Hospitalization)
  Sender: FDA-Public Use
  Company Number: NL-CELLTRION INC.-2021NL001481

PATIENT

DRUGS (5)
  1. CARBOPLATIN. [Suspect]
     Active Substance: CARBOPLATIN
     Indication: HER2 POSITIVE BREAST CANCER
     Dosage: 401 MG, 3/WEEK (MOST RECENT DOSE OF CARBOPLATIN: 10/APR/2020)
     Route: 042
     Dates: start: 20191018
  2. TRASTUZUMAB EMTANSINE [Suspect]
     Active Substance: ADO-TRASTUZUMAB EMTANSINE
     Indication: HER2 POSITIVE BREAST CANCER
     Dosage: 240 MG (MOST RECENT DOSE OF TRASTUZUMAB EMTANSINE ON 08/AUG/2020)
     Route: 042
     Dates: start: 20200808, end: 20200808
  3. PERTUZUMAB. [Suspect]
     Active Substance: PERTUZUMAB
     Indication: HER2 POSITIVE BREAST CANCER
     Dosage: 420 MG, 3/WEEK (MOST RECENT DOSE OF PERTUZUMAB17/JUN/2020)
     Route: 042
     Dates: start: 20191018
  4. TRASTUZUMAB (UNKNOWN) [Suspect]
     Active Substance: TRASTUZUMAB
     Indication: HER2 POSITIVE BREAST CANCER
     Dosage: 386 MG, 3/WEEK (MOST RECENT DOSE OF TRASTUZUMAB 17/JUN/2020)
     Route: 042
     Dates: start: 20191018
  5. PACLITAXEL. [Suspect]
     Active Substance: PACLITAXEL
     Indication: HER2 POSITIVE BREAST CANCER
     Dosage: 108 MG, 3/WEEK (MOST RECENT DOSE OF PACLITAXEL: 10/APR/2020)
     Route: 042
     Dates: start: 20191018

REACTIONS (1)
  - Platelet count decreased [Unknown]

NARRATIVE: CASE EVENT DATE: 20200813
